FAERS Safety Report 17395547 (Version 1)
Quarter: 2020Q1

REPORT INFORMATION
  Report Type: Spontaneous
  Country: US (occurrence: US)
  Receive Date: 20200124
  Receipt Date: 20200124
  Transmission Date: 20200409
  Serious: No
  Sender: FDA-Public Use
  Company Number: None

PATIENT
  Age: 53 Year
  Sex: Female

DRUGS (4)
  1. HYDROMORPHONE ER [Suspect]
     Active Substance: HYDROMORPHONE HYDROCHLORIDE
     Dosage: ?          OTHER FREQUENCY:PRN;?
     Route: 048
     Dates: start: 201202, end: 201202
  2. TRAMADOL. [Concomitant]
     Active Substance: TRAMADOL
  3. OXYCODONE [Concomitant]
     Active Substance: OXYCODONE
  4. NEURONTIN [Concomitant]
     Active Substance: GABAPENTIN

REACTIONS (2)
  - Incoherent [None]
  - Hallucination [None]

NARRATIVE: CASE EVENT DATE: 20120228
